FAERS Safety Report 18790472 (Version 1)
Quarter: 2021Q1

REPORT INFORMATION
  Report Type: Spontaneous
  Country: JP (occurrence: JP)
  Receive Date: 20210126
  Receipt Date: 20210126
  Transmission Date: 20210419
  Serious: Yes (Other)
  Sender: FDA-Public Use
  Company Number: JP-BAYER-2021-034701

PATIENT
  Sex: Female

DRUGS (2)
  1. YAZ [Suspect]
     Active Substance: DROSPIRENONE\ETHINYL ESTRADIOL
     Indication: PREMENSTRUAL SYNDROME
     Dosage: UNK
     Route: 048
  2. YAZ [Suspect]
     Active Substance: DROSPIRENONE\ETHINYL ESTRADIOL
     Indication: PREMENSTRUAL SYNDROME
     Dosage: UNK
     Route: 048
     Dates: end: 20210121

REACTIONS (13)
  - Depression [None]
  - Hypomenorrhoea [None]
  - Lacrimation increased [None]
  - Therapy interrupted [None]
  - Angina pectoris [None]
  - Musculoskeletal chest pain [None]
  - Off label use [None]
  - Insomnia [None]
  - Dyspnoea [None]
  - Physical deconditioning [None]
  - Discouragement [None]
  - Dysmenorrhoea [None]
  - Pulse abnormal [None]
